FAERS Safety Report 26151999 (Version 1)
Quarter: 2025Q4

REPORT INFORMATION
  Report Type: Spontaneous
  Country: JP (occurrence: JP)
  Receive Date: 20251214
  Receipt Date: 20251214
  Transmission Date: 20260117
  Serious: Yes (Death, Other)
  Sender: AMGEN
  Company Number: JP-AMGEN-JPNSP2025243903

PATIENT
  Age: 19 Year
  Sex: Male

DRUGS (4)
  1. BLINATUMOMAB [Suspect]
     Active Substance: BLINATUMOMAB
     Indication: B precursor type acute leukaemia
     Dosage: UNK
     Route: 065
  2. INOTUZUMAB OZOGAMICIN [Suspect]
     Active Substance: INOTUZUMAB OZOGAMICIN
     Indication: B precursor type acute leukaemia
     Dosage: 0.8 MILLIGRAM/SQ. METER, ON CYCLE 1 DAY 1
     Route: 065
  3. INOTUZUMAB OZOGAMICIN [Suspect]
     Active Substance: INOTUZUMAB OZOGAMICIN
     Dosage: 0.5 MILLIGRAM/SQ. METER, ON DAYS 8 AND 15
     Route: 065
  4. INOTUZUMAB OZOGAMICIN [Suspect]
     Active Substance: INOTUZUMAB OZOGAMICIN
     Dosage: 0.5 MILLIGRAM/SQ. METER, 3 DOSES IN CYCLE 2
     Route: 065

REACTIONS (6)
  - B precursor type acute leukaemia [Fatal]
  - Thrombocytopenia [Unknown]
  - Neutropenia [Unknown]
  - Lymphopenia [Unknown]
  - Aspartate aminotransferase increased [Unknown]
  - Alanine aminotransferase increased [Unknown]
